FAERS Safety Report 14977838 (Version 2)
Quarter: 2018Q3

REPORT INFORMATION
  Report Type: Report from Study
  Country: None (occurrence: UY)
  Receive Date: 20180606
  Receipt Date: 20180713
  Transmission Date: 20181010
  Serious: Yes (Other)
  Sender: FDA-Public Use
  Company Number: UY-ABBVIE-18K-168-2378549-00

PATIENT
  Age: 61 Year
  Sex: Female

DRUGS (2)
  1. HUMIRA [Suspect]
     Active Substance: ADALIMUMAB
     Indication: RHEUMATOID ARTHRITIS
     Route: 058
  2. HUMIRA [Suspect]
     Active Substance: ADALIMUMAB
     Indication: RHEUMATOID ARTHRITIS
     Route: 058
     Dates: start: 20150122

REACTIONS (8)
  - Ligamentum flavum hypertrophy [Unknown]
  - Lumbar spinal stenosis [Unknown]
  - Spinal compression fracture [Not Recovered/Not Resolved]
  - Spondylolisthesis [Unknown]
  - Musculoskeletal stiffness [Not Recovered/Not Resolved]
  - Intervertebral disc protrusion [Unknown]
  - Fall [Not Recovered/Not Resolved]
  - Spinal osteoarthritis [Unknown]

NARRATIVE: CASE EVENT DATE: 201805
